FAERS Safety Report 5563993-5 (Version None)
Quarter: 2007Q4

REPORT INFORMATION
  Report Type: 
  Country: None (occurrence: None)
  Receive Date: 20071217
  Receipt Date: 20071205
  Transmission Date: 20080405
  Serious: Yes (Hospitalization, Other)
  Sender: FDA-Public Use
  Company Number: DE-PFIZER INC-2007040259

PATIENT
  Sex: Male
  Weight: 92 kg

DRUGS (1)
  1. SUTENT [Suspect]
     Indication: RENAL CELL CARCINOMA STAGE UNSPECIFIED
     Dosage: DAILY DOSE:50MG-FREQ:FOUR WEEKS ON , TWO WEEKS OFF
     Route: 048
     Dates: start: 20070310, end: 20070516

REACTIONS (2)
  - DILATATION VENTRICULAR [None]
  - EJECTION FRACTION DECREASED [None]
